FAERS Safety Report 4706095-X (Version None)
Quarter: 2005Q2

REPORT INFORMATION
  Report Type: 
  Country: None (occurrence: None)
  Receive Date: 20050627
  Receipt Date: 20050119
  Transmission Date: 20051028
  Serious: Yes (Hospitalization, Other)
  Sender: FDA-Public Use
  Company Number: US-JNJFOC-20050104720

PATIENT
  Age: 26 Year
  Sex: Female

DRUGS (2)
  1. DURAGESIC-100 [Suspect]
     Dosage: TRANSDERMAL
     Route: 062
  2. ACTIQ [Suspect]
     Dosage: SUBLINGUAL
     Route: 060

REACTIONS (1)
  - DRUG ABUSER [None]
